FAERS Safety Report 7403614-X (Version None)
Quarter: 2011Q2

REPORT INFORMATION
  Report Type: 
  Country: None (occurrence: None)
  Receive Date: 20110408
  Receipt Date: 20110406
  Transmission Date: 20111010
  Serious: Yes (Death)
  Sender: FDA-Public Use
  Company Number: US-PFIZER INC-2011073206

PATIENT

DRUGS (3)
  1. NEURONTIN [Suspect]
     Dosage: UNK
     Route: 048
  2. PROTONIX [Suspect]
     Dosage: UNK
     Route: 048
  3. NORVASC [Suspect]
     Dosage: UNK
     Route: 048

REACTIONS (1)
  - DEATH [None]
